FAERS Safety Report 8219034-4 (Version None)
Quarter: 2012Q1

REPORT INFORMATION
  Report Type: 
  Country: None (occurrence: None)
  Receive Date: 20120319
  Receipt Date: 20120315
  Transmission Date: 20120608
  Serious: Yes (Other)
  Sender: FDA-Public Use
  Company Number: US-PFIZER INC-2012068963

PATIENT
  Sex: Male
  Weight: 89.342 kg

DRUGS (4)
  1. DEPAKOTE [Concomitant]
     Dosage: 2000 MG, 1X/DAY
  2. LYRICA [Suspect]
     Indication: SPINAL COLUMN STENOSIS
     Dosage: 75 MG, 3X/DAY
     Route: 048
     Dates: start: 20110101, end: 20110201
  3. LYRICA [Suspect]
     Dosage: 150 MG, 3X/DAY
     Route: 048
     Dates: start: 20110201
  4. VICODIN [Concomitant]
     Dosage: 75/7.5 MG, 4X/DAY

REACTIONS (2)
  - MUSCLE SPASMS [None]
  - WEIGHT DECREASED [None]
